FAERS Safety Report 6543316-5 (Version None)
Quarter: 2010Q1

REPORT INFORMATION
  Report Type: 
  Country: None (occurrence: None)
  Receive Date: 20100120
  Receipt Date: 20100115
  Transmission Date: 20100710
  Serious: Yes (Death, Hospitalization)
  Sender: FDA-Public Use
  Company Number: GB-ABBOTT-10P-167-0619282-00

PATIENT
  Age: 4 Week
  Sex: Male

DRUGS (5)
  1. SEVOFLURANE [Suspect]
     Indication: INDUCTION OF ANAESTHESIA
  2. MIDAZOLAM HCL [Suspect]
     Indication: INDUCTION OF ANAESTHESIA
  3. PROPOFOL [Suspect]
     Indication: INDUCTION OF ANAESTHESIA
  4. FENTANYL [Suspect]
     Indication: INDUCTION OF ANAESTHESIA
  5. DEXTROSE [Concomitant]
     Indication: DRUG USE FOR UNKNOWN INDICATION
     Route: 042

REACTIONS (2)
  - METABOLIC ACIDOSIS [None]
  - RESPIRATORY FAILURE [None]
